FAERS Safety Report 4981104-1 (Version None)
Quarter: 2006Q2

REPORT INFORMATION
  Report Type: 
  Country: None (occurrence: None)
  Receive Date: 20060418
  Receipt Date: 20060409
  Transmission Date: 20061013
  Serious: Yes (Other)
  Sender: FDA-Public Use
  Company Number: 13890

PATIENT
  Age: 69 Year
  Sex: Female

DRUGS (2)
  1. AMIODARONE HCL [Suspect]
     Indication: ATRIAL FIBRILLATION
     Dosage: 100 MG QD
  2. AMIODARONE HCL [Suspect]
     Indication: ATRIAL FIBRILLATION
     Dosage: 300 MG

REACTIONS (7)
  - CORNEAL CYST [None]
  - CORNEAL OEDEMA [None]
  - GLARE [None]
  - HALO VISION [None]
  - KERATITIS [None]
  - KERATOPATHY [None]
  - VISUAL ACUITY REDUCED [None]
